FAERS Safety Report 8286387-0 (Version None)
Quarter: 2012Q2

REPORT INFORMATION
  Report Type: 
  Country: None (occurrence: None)
  Receive Date: 20120411
  Receipt Date: 20120402
  Transmission Date: 20120825
  Serious: Yes (Hospitalization)
  Sender: FDA-Public Use
  Company Number: 2012SP017839

PATIENT
  Age: 37 Year
  Sex: Female

DRUGS (5)
  1. CLOMID [Suspect]
     Indication: IN VITRO FERTILISATION
     Dosage: 100 MG;QD;PO
     Route: 048
     Dates: start: 20040101
  2. PUREGON (FOLLITROPIN BETA /01348901/) [Suspect]
     Indication: IN VITRO FERTILISATION
     Dosage: SC;SC
     Route: 058
     Dates: start: 20080401
  3. PUREGON (FOLLITROPIN BETA /01348901/) [Suspect]
     Indication: IN VITRO FERTILISATION
     Dosage: SC;SC
     Route: 058
     Dates: start: 20050322, end: 20050402
  4. GONADORELIN INJ [Suspect]
     Indication: IN VITRO FERTILISATION
     Dosage: SC;SC
     Route: 058
     Dates: start: 20080401
  5. GONADORELIN INJ [Suspect]
     Indication: IN VITRO FERTILISATION
     Dosage: SC;SC
     Route: 058
     Dates: start: 20050311, end: 20050402

REACTIONS (3)
  - PREGNANCY [None]
  - MATERNAL EXPOSURE BEFORE PREGNANCY [None]
  - BREAST CANCER FEMALE [None]
